FAERS Safety Report 10074279 (Version 1)
Quarter: 2014Q2

REPORT INFORMATION
  Report Type: Spontaneous
  Country: IT (occurrence: IT)
  Receive Date: 20140413
  Receipt Date: 20140413
  Transmission Date: 20141212
  Serious: Yes (Disabling)
  Sender: FDA-Public Use
  Company Number: PHHY2014IT044197

PATIENT
  Age: 59 Year
  Sex: Female

DRUGS (8)
  1. ZOMETA [Suspect]
     Indication: PLASMA CELL MYELOMA
     Dosage: 4 MG, CYCLIC
     Dates: start: 20110401, end: 20130601
  2. ZOMETA [Suspect]
     Dosage: UNK UKN, UNK
  3. VELCADE [Concomitant]
     Dosage: UNK UKN, UNK
     Route: 042
     Dates: start: 20101116, end: 20110131
  4. THALIDOMIDE CELGENE [Concomitant]
     Dosage: 100 MG, UNK
  5. CACIT VITAMINA D3 [Concomitant]
     Dosage: UNK UKN, UNK
  6. NICETILE [Concomitant]
     Dosage: UNK UKN, UNK
  7. SOLDESAM [Concomitant]
     Dosage: UNK UKN, UNK
  8. PARIET [Concomitant]
     Dosage: UNK UKN, UNK

REACTIONS (1)
  - Osteonecrosis [Not Recovered/Not Resolved]
